FAERS Safety Report 17483992 (Version 1)
Quarter: 2020Q1

REPORT INFORMATION
  Report Type: Spontaneous
  Country: US (occurrence: US)
  Receive Date: 20200302
  Receipt Date: 20200302
  Transmission Date: 20200409
  Serious: Yes (Other)
  Sender: FDA-Public Use
  Company Number: US-JAZZ-JPI-P-024022

PATIENT
  Age: 34 Year
  Sex: Male

DRUGS (2)
  1. XYREM [Suspect]
     Active Substance: SODIUM OXYBATE
     Indication: INSOMNIA
     Dosage: 2.5 GRAM, BID
     Route: 048
     Dates: start: 20080407
  2. XYREM [Suspect]
     Active Substance: SODIUM OXYBATE
     Dosage: 4.5 GRAM, BID
     Route: 048
     Dates: start: 20080415

REACTIONS (4)
  - Chronic fatigue syndrome [Not Recovered/Not Resolved]
  - Drug diversion [Unknown]
  - Post-traumatic stress disorder [Recovering/Resolving]
  - Victim of crime [Recovering/Resolving]

NARRATIVE: CASE EVENT DATE: 2012
